FAERS Safety Report 4999836-8 (Version None)
Quarter: 2006Q2

REPORT INFORMATION
  Report Type: 
  Country: None (occurrence: None)
  Receive Date: 20060511
  Receipt Date: 20060503
  Transmission Date: 20061013
  Serious: Yes (Other)
  Sender: FDA-Public Use
  Company Number: PHBS2006IT06586

PATIENT
  Sex: Male

DRUGS (1)
  1. VOLTAREN OFTA (NVO) [Suspect]

REACTIONS (2)
  - EYE OPERATION [None]
  - VITREOUS DISORDER [None]
